FAERS Safety Report 8167052-7 (Version None)
Quarter: 2012Q1

REPORT INFORMATION
  Report Type: 
  Country: None (occurrence: None)
  Receive Date: 20120227
  Receipt Date: 20120214
  Transmission Date: 20120608
  Serious: Yes (Other)
  Sender: FDA-Public Use
  Company Number: NO-UCBSA-035435

PATIENT
  Age: 40 Year
  Sex: Female

DRUGS (2)
  1. CERTOLIZUMAB PEGOL [Suspect]
     Indication: RHEUMATOID ARTHRITIS
     Route: 058
     Dates: start: 20100601, end: 20110810
  2. METHOTREXATE [Concomitant]

REACTIONS (9)
  - URINARY TRACT INFECTION [None]
  - WOUND [None]
  - NEUTROPENIA [None]
  - IMPAIRED HEALING [None]
  - LIVER FUNCTION TEST ABNORMAL [None]
  - NASOPHARYNGITIS [None]
  - DERMATITIS ALLERGIC [None]
  - KNEE ARTHROPLASTY [None]
  - DRUG INEFFECTIVE [None]
